FAERS Safety Report 6613494-8 (Version None)
Quarter: 2010Q1

REPORT INFORMATION
  Report Type: 
  Country: None (occurrence: None)
  Receive Date: 20100304
  Receipt Date: 20100219
  Transmission Date: 20100710
  Serious: Yes (Other)
  Sender: FDA-Public Use
  Company Number: US-SANOFI-AVENTIS-2010SA010054

PATIENT
  Sex: Male

DRUGS (7)
  1. PLAVIX [Suspect]
     Route: 048
     Dates: start: 20100114
  2. WARFARIN SODIUM [Suspect]
     Route: 048
     Dates: start: 20100114, end: 20100201
  3. WARFARIN SODIUM [Suspect]
     Dosage: 5 MG DAILY ALTERNATING WITH 7.5 MG DAILY
     Route: 048
     Dates: start: 20100201, end: 20100201
  4. WARFARIN SODIUM [Suspect]
     Route: 048
     Dates: start: 20100201
  5. LISINOPRIL [Concomitant]
  6. SIMVASTATIN [Concomitant]
  7. METOPROLOL TARTRATE [Concomitant]

REACTIONS (9)
  - CONTUSION [None]
  - HYPERAESTHESIA [None]
  - JOINT SWELLING [None]
  - OEDEMA PERIPHERAL [None]
  - RASH ERYTHEMATOUS [None]
  - SCAB [None]
  - SKIN EXFOLIATION [None]
  - SKIN LESION [None]
  - SKIN NECROSIS [None]
